FAERS Safety Report 21501763 (Version 2)
Quarter: 2022Q4

REPORT INFORMATION
  Report Type: Other
  Country: US (occurrence: None)
  Receive Date: 20221025
  Receipt Date: 20221028
  Transmission Date: 20230113
  Serious: Yes (Hospitalization, Other)
  Sender: FDA-Public Use
  Company Number: US-ROCHE-2075480

PATIENT
  Age: 48 Year
  Sex: Male
  Weight: 127.12 kg

DRUGS (29)
  1. CLONAZEPAM [Suspect]
     Active Substance: CLONAZEPAM
     Indication: Product used for unknown indication
     Dosage: AT BED TIME
     Route: 048
  2. CELLCEPT [Suspect]
     Active Substance: MYCOPHENOLATE MOFETIL
     Indication: Myasthenia gravis
     Route: 048
  3. CELLCEPT [Suspect]
     Active Substance: MYCOPHENOLATE MOFETIL
     Route: 048
  4. LYRICA [Suspect]
     Active Substance: PREGABALIN
     Indication: Pain
     Dosage: HELPS PAIN BUT CAUSES SWELLING IN LOWER LIMBS
     Route: 065
  5. NARCAN [Suspect]
     Active Substance: NALOXONE HYDROCHLORIDE
     Indication: Product used for unknown indication
     Route: 065
  6. ELAVIL [Suspect]
     Active Substance: AMITRIPTYLINE HYDROCHLORIDE
     Indication: Product used for unknown indication
     Route: 065
  7. TOPAMAX [Concomitant]
     Active Substance: TOPIRAMATE
     Indication: Tremor
  8. AMBIEN [Concomitant]
     Active Substance: ZOLPIDEM TARTRATE
     Route: 048
  9. TRAZODONE [Concomitant]
     Active Substance: TRAZODONE HYDROCHLORIDE
  10. NORTRIPTYLINE [Concomitant]
     Active Substance: NORTRIPTYLINE
  11. MELATONIN [Concomitant]
     Active Substance: MELATONIN
  12. CYMBALTA [Concomitant]
     Active Substance: DULOXETINE HYDROCHLORIDE
     Indication: Depression
     Dosage: NOT HELPING HIS DEPRESSION
  13. PREGABALIN [Concomitant]
     Active Substance: PREGABALIN
     Dosage: CAUSES LOWER LIMB SWELLING IN CONTINUOUS USE
  14. PREDNISONE [Concomitant]
     Active Substance: PREDNISONE
     Dosage: FOR 2 WEEKS(LOWER THE DOSE BY 10 MG EVERY 2 WEEKS)
  15. REMERON [Concomitant]
     Active Substance: MIRTAZAPINE
     Indication: Insomnia
     Dosage: EVERY NIGHT
  16. LUNESTA [Concomitant]
     Active Substance: ESZOPICLONE
     Indication: Insomnia
  17. GABAPENTIN [Concomitant]
     Active Substance: GABAPENTIN
     Dosage: IN THE MORNING
  18. GABAPENTIN [Concomitant]
     Active Substance: GABAPENTIN
     Dosage: IN THE EVENING
  19. NORCO [Concomitant]
     Active Substance: ACETAMINOPHEN\HYDROCODONE BITARTRATE
     Indication: Pain
     Dosage: 1 TAB?AS REQUIRED
     Route: 048
  20. MOBIC [Concomitant]
     Active Substance: MELOXICAM
     Indication: Arthralgia
     Dosage: JOINT PAINS ARE BETTER WITH MOBIC
  21. KEPPRA [Concomitant]
     Active Substance: LEVETIRACETAM
  22. ADVAIR HFA [Concomitant]
     Active Substance: FLUTICASONE PROPIONATE\SALMETEROL XINAFOATE
     Dosage: ONE PUFF TWICE A DAY
  23. CELEXA [Concomitant]
     Active Substance: CITALOPRAM HYDROBROMIDE
  24. BACLOFEN [Concomitant]
     Active Substance: BACLOFEN
     Dosage: 1/2 TAB TID THEN 1 TAB TID
     Route: 048
  25. ADVAIR HFA [Concomitant]
     Active Substance: FLUTICASONE PROPIONATE\SALMETEROL XINAFOATE
     Dosage: 2 PUFF BID
  26. NOVOLOG [Concomitant]
     Active Substance: INSULIN ASPART
     Dosage: 8 UNIT
     Route: 058
  27. LEVETIRACETAM [Concomitant]
     Active Substance: LEVETIRACETAM
     Route: 048
  28. ZOLPIDEM [Concomitant]
     Active Substance: ZOLPIDEM TARTRATE
     Route: 048
  29. TRAZODONE [Concomitant]
     Active Substance: TRAZODONE HYDROCHLORIDE

REACTIONS (29)
  - Hypersomnia [Unknown]
  - Confusional state [Unknown]
  - Illness [Unknown]
  - Pain in extremity [Unknown]
  - Diabetes mellitus [Unknown]
  - Fall [Unknown]
  - Contusion [Unknown]
  - Neuralgia [Not Recovered/Not Resolved]
  - Sinusitis [Unknown]
  - Muscular weakness [Unknown]
  - Weight loss poor [Unknown]
  - Asthenia [Unknown]
  - Gait disturbance [Unknown]
  - Dizziness [Unknown]
  - Eye disorder [Unknown]
  - Dyspnoea [Unknown]
  - Peripheral swelling [Unknown]
  - Wheezing [Unknown]
  - Muscle spasms [Unknown]
  - Back pain [Unknown]
  - Insomnia [Unknown]
  - Rash [Unknown]
  - Dizziness postural [Unknown]
  - Muscle twitching [Unknown]
  - Arthralgia [Unknown]
  - Musculoskeletal stiffness [Unknown]
  - Drug intolerance [Unknown]
  - Fatigue [Unknown]
  - Off label use [Unknown]

NARRATIVE: CASE EVENT DATE: 20120501
